FAERS Safety Report 8421939-6 (Version None)
Quarter: 2012Q2

REPORT INFORMATION
  Report Type: 
  Country: None (occurrence: None)
  Receive Date: 20120608
  Receipt Date: 20120531
  Transmission Date: 20120825
  Serious: Yes (Other)
  Sender: FDA-Public Use
  Company Number: PHHY2012JP047672

PATIENT
  Sex: Female

DRUGS (12)
  1. NEORAL [Suspect]
     Dosage: 150 MG, UNK
     Route: 064
     Dates: start: 20100824, end: 20101028
  2. NEORAL [Suspect]
     Dosage: 125 MG, UNK
     Route: 064
     Dates: start: 20101029, end: 20101118
  3. PREDNISOLONE [Suspect]
     Dosage: 12.5 MG, UNK
     Route: 064
     Dates: start: 20101029, end: 20110203
  4. PREDNISOLONE [Suspect]
     Dosage: 30 MG, UNK
     Route: 064
     Dates: start: 20110311, end: 20110324
  5. PREDNISOLONE [Suspect]
     Dosage: 20 MG, UNK
     Route: 064
     Dates: start: 20110325, end: 20110616
  6. NEORAL [Suspect]
     Dosage: 100 MG, UNK
     Route: 064
     Dates: start: 20101119, end: 20110113
  7. NEORAL [Suspect]
     Dosage: 50 MG, UNK
     Route: 064
     Dates: start: 20110506, end: 20110519
  8. NEORAL [Suspect]
     Dosage: 25 MG, UNK
     Route: 064
     Dates: start: 20110520, end: 20110602
  9. NEORAL [Suspect]
     Dosage: 75 MG, UNK
     Route: 064
     Dates: start: 20110114, end: 20110505
  10. PREDNISOLONE [Suspect]
     Dosage: 7.5 MG, UNK
     Route: 064
     Dates: start: 20100824, end: 20101014
  11. PREDNISOLONE [Suspect]
     Dosage: 20 MG, UNK
     Route: 064
     Dates: start: 20101015, end: 20101028
  12. PREDNISOLONE [Suspect]
     Dosage: 20 MG, UNK
     Route: 064
     Dates: start: 20110204, end: 20110310

REACTIONS (2)
  - FOETAL EXPOSURE DURING PREGNANCY [None]
  - LOW BIRTH WEIGHT BABY [None]
